FAERS Safety Report 15497581 (Version 1)
Quarter: 2018Q4

REPORT INFORMATION
  Report Type: Report from Study
  Country: None (occurrence: US)
  Receive Date: 20181015
  Receipt Date: 20181015
  Transmission Date: 20190205
  Serious: Yes (Hospitalization, Disabling, Other)
  Sender: FDA-Public Use
  Company Number: US-ABBVIE-18S-163-2448587-00

PATIENT
  Sex: Female
  Weight: 79.45 kg

DRUGS (3)
  1. ATENOLOL. [Concomitant]
     Active Substance: ATENOLOL
     Indication: ARRHYTHMIA
  2. CREON [Suspect]
     Active Substance: PANCRELIPASE AMYLASE\PANCRELIPASE LIPASE\PANCRELIPASE PROTEASE
     Indication: PANCREATITIS
     Dosage: 1 CAPSULE
     Route: 048
     Dates: start: 201806, end: 201810
  3. CREON [Suspect]
     Active Substance: PANCRELIPASE AMYLASE\PANCRELIPASE LIPASE\PANCRELIPASE PROTEASE
     Dosage: 2 CAPSULES
     Route: 048
     Dates: start: 201810

REACTIONS (9)
  - Hepatic enzyme increased [Recovering/Resolving]
  - Abdominal pain upper [Recovering/Resolving]
  - Pancreatic carcinoma [Not Recovered/Not Resolved]
  - Gait disturbance [Recovering/Resolving]
  - Oedema peripheral [Recovering/Resolving]
  - Bile duct obstruction [Recovered/Resolved]
  - White blood cell count increased [Recovered/Resolved]
  - Dyspnoea [Unknown]
  - Parenteral nutrition [Unknown]

NARRATIVE: CASE EVENT DATE: 2018
